FAERS Safety Report 9527115 (Version 2)
Quarter: 2013Q3

REPORT INFORMATION
  Report Type: Spontaneous
  Country: ES (occurrence: NL)
  Receive Date: 20130916
  Receipt Date: 20130930
  Transmission Date: 20140515
  Serious: Yes (Other)
  Sender: FDA-Public Use
  Company Number: ES-009507513-1309ESP005926

PATIENT
  Sex: 0

DRUGS (1)
  1. SITAGLIPTIN PHOSPHATE [Suspect]
     Route: 048

REACTIONS (1)
  - Rhabdomyolysis [Unknown]
